FAERS Safety Report 10197893 (Version 2)
Quarter: 2014Q2

REPORT INFORMATION
  Report Type: Report from Study
  Country: US (occurrence: US)
  Receive Date: 20140527
  Receipt Date: 20140527
  Transmission Date: 20141212
  Serious: Yes (Hospitalization, Other)
  Sender: FDA-Public Use
  Company Number: US-BRISTOL-MYERS SQUIBB COMPANY-13475165

PATIENT
  Age: 31 Year
  Sex: Male

DRUGS (14)
  1. BELATACEPT [Suspect]
     Indication: RENAL TRANSPLANT
     Route: 042
     Dates: start: 20060530, end: 20060809
  2. MYCOPHENOLATE MOFETIL [Suspect]
     Dosage: STOPPED 14AUG2006; AS OF NOV-2009 ON 500MG BID
     Route: 048
     Dates: start: 20060529
  3. PREDNISONE [Suspect]
     Dosage: NOV-2009 ON 5MG/D
     Route: 048
     Dates: start: 20060601
  4. VALCYTE [Concomitant]
     Indication: RENAL TRANSPLANT
     Route: 048
     Dates: start: 20060531
  5. ASPIRIN [Concomitant]
     Route: 048
     Dates: start: 20060530
  6. BACTRIM [Concomitant]
     Route: 048
     Dates: start: 20060530
  7. LEVOXYL [Concomitant]
     Route: 048
     Dates: start: 20060531
  8. ALLOPURINOL [Concomitant]
     Route: 048
     Dates: start: 20060531
  9. FLUCONAZOLE [Concomitant]
     Route: 048
     Dates: start: 20060531
  10. CARDURA [Concomitant]
     Route: 048
     Dates: start: 20060604
  11. ZEMPLAR [Concomitant]
     Route: 048
     Dates: start: 20060531
  12. TOPROL XL [Concomitant]
     Indication: HYPERTENSION
     Route: 048
     Dates: start: 20060628
  13. NORVASC [Concomitant]
     Route: 048
     Dates: start: 20060602
  14. CALCIUM CARBONATE [Concomitant]
     Route: 048
     Dates: start: 20060531

REACTIONS (2)
  - Post transplant lymphoproliferative disorder [Recovered/Resolved]
  - Kidney transplant rejection [Unknown]
